FAERS Safety Report 17885700 (Version 1)
Quarter: 2020Q2

REPORT INFORMATION
  Report Type: Spontaneous
  Country: US (occurrence: US)
  Receive Date: 20200611
  Receipt Date: 20200611
  Transmission Date: 20200714
  Serious: Yes (Other)
  Sender: FDA-Public Use
  Company Number: US-ELI_LILLY_AND_COMPANY-US202006001725

PATIENT
  Age: 64 Year
  Sex: Male

DRUGS (4)
  1. HUMALOG [Suspect]
     Active Substance: INSULIN LISPRO
     Indication: PRODUCT USED FOR UNKNOWN INDICATION
     Dosage: 7-20 U, PRN (SLIDING SCALE BEFORE MEALS)
     Route: 065
  2. HUMALOG [Suspect]
     Active Substance: INSULIN LISPRO
     Dosage: 7-20 U, PRN (SLIDING SCALE BEFORE MEALS)
     Route: 065
     Dates: start: 202005
  3. HUMALOG [Suspect]
     Active Substance: INSULIN LISPRO
     Dosage: 7-20 U, PRN (SLIDING SCALE BEFORE MEALS)
     Route: 065
     Dates: start: 202005
  4. HUMALOG [Suspect]
     Active Substance: INSULIN LISPRO
     Indication: PRODUCT USED FOR UNKNOWN INDICATION
     Dosage: 7-20 U, PRN (SLIDING SCALE BEFORE MEALS)
     Route: 065

REACTIONS (7)
  - Pancreatic disorder [Unknown]
  - Weight decreased [Unknown]
  - Acquired corneal dystrophy [Unknown]
  - Product storage error [Unknown]
  - Multiple sclerosis [Unknown]
  - Blood glucose abnormal [Unknown]
  - Glycosylated haemoglobin increased [Unknown]

NARRATIVE: CASE EVENT DATE: 202005
